FAERS Safety Report 5616038-2 (Version None)
Quarter: 2008Q1

REPORT INFORMATION
  Report Type: 
  Country: None (occurrence: None)
  Receive Date: 20080206
  Receipt Date: 20080125
  Transmission Date: 20080703
  Serious: Yes (Death)
  Sender: FDA-Public Use
  Company Number: DE-PFIZER INC-2007072877

PATIENT
  Age: 64 Year
  Sex: Male

DRUGS (1)
  1. LYRICA [Suspect]
     Indication: NEURALGIA
     Route: 048

REACTIONS (5)
  - DISEASE PROGRESSION [None]
  - DRY MOUTH [None]
  - DYSPHONIA [None]
  - MUSCLE SPASMS [None]
  - TINNITUS [None]
